FAERS Safety Report 24391404 (Version 1)
Quarter: 2024Q4

REPORT INFORMATION
  Report Type: Spontaneous
  Country: EG (occurrence: EG)
  Receive Date: 20241003
  Receipt Date: 20241003
  Transmission Date: 20250115
  Serious: Yes (Life-Threatening, Hospitalization)
  Sender: PFIZER
  Company Number: EG-PFIZER INC-PV202400127426

PATIENT
  Age: 42 Year
  Sex: Male
  Weight: 60 kg

DRUGS (5)
  1. ADRIAMYCIN [Suspect]
     Active Substance: DOXORUBICIN HYDROCHLORIDE
     Indication: Hodgkin^s disease
     Dosage: 40 MG, EVERY 3 WEEKS
     Route: 042
     Dates: start: 20240902
  2. DACARBAZINE [Suspect]
     Active Substance: DACARBAZINE
     Indication: Hodgkin^s disease
     Dosage: 600 MG, EVERY 3 WEEKS
     Route: 042
     Dates: start: 20240902
  3. DEXAMETHASONE [Concomitant]
     Active Substance: DEXAMETHASONE
     Indication: Chemotherapy side effect prophylaxis
     Dosage: UNK
  4. PIRAFENE [Concomitant]
     Indication: Chemotherapy side effect prophylaxis
     Dosage: UNK
  5. ANTODINE [CALCIUM CARBONATE;FAMOTIDINE;MAGNESIUM HYDROXIDE] [Concomitant]
     Indication: Chemotherapy side effect prophylaxis
     Dosage: UNK

REACTIONS (3)
  - Dyspnoea [Recovered/Resolved]
  - Hypoxia [Recovered/Resolved]
  - Bronchospasm [Recovered/Resolved]

NARRATIVE: CASE EVENT DATE: 20240902
